FAERS Safety Report 8271023-X (Version None)
Quarter: 2012Q2

REPORT INFORMATION
  Report Type: 
  Country: None (occurrence: None)
  Receive Date: 20120410
  Receipt Date: 20120409
  Transmission Date: 20120825
  Serious: Yes (Life-Threatening, Other)
  Sender: FDA-Public Use
  Company Number: US-ROXANE LABORATORIES, INC.-2012-RO-01010RO

PATIENT
  Age: 54 Year
  Sex: Female

DRUGS (3)
  1. QUETIAPINE FUMARATE [Suspect]
     Indication: MAJOR DEPRESSION
     Route: 048
     Dates: start: 20120402, end: 20120408
  2. KLONOPIN [Concomitant]
  3. PROZAC [Concomitant]

REACTIONS (4)
  - SUICIDAL IDEATION [None]
  - INSOMNIA [None]
  - DEPRESSION SUICIDAL [None]
  - DRUG INEFFECTIVE [None]
